FAERS Safety Report 12519402 (Version 3)
Quarter: 2024Q4

REPORT INFORMATION
  Report Type: Spontaneous
  Country: TW (occurrence: TW)
  Receive Date: 20160630
  Receipt Date: 20241107
  Transmission Date: 20250114
  Serious: Yes (Hospitalization, Other)
  Sender: SANOFI AVENTIS
  Company Number: TW-SA-2016SA113544

PATIENT
  Age: 50 Year
  Sex: Female

DRUGS (3)
  1. CISPLATIN [Suspect]
     Active Substance: CISPLATIN
     Indication: Nasopharyngeal cancer stage I
     Dosage: 80 MG/M2,QM INFUSION
  2. DOCETAXEL [Suspect]
     Active Substance: DOCETAXEL
     Indication: Nasopharyngeal cancer stage I
     Dosage: 60 MG/M2,QM INFUSION
  3. FLUOROURACIL [Suspect]
     Active Substance: FLUOROURACIL
     Indication: Nasopharyngeal cancer stage I
     Dosage: 800 MG/M2,QM

REACTIONS (5)
  - Osmotic demyelination syndrome [Recovering/Resolving]
  - Hyponatraemia [Recovered/Resolved]
  - Dizziness [Recovered/Resolved]
  - Irritability [Recovered/Resolved]
  - Febrile neutropenia [Recovering/Resolving]

NARRATIVE: CASE EVENT DATE: 20140605
